FAERS Safety Report 10577542 (Version 2)
Quarter: 2014Q4

REPORT INFORMATION
  Report Type: Report from Study
  Country: IL (occurrence: IL)
  Receive Date: 20141111
  Receipt Date: 20141111
  Transmission Date: 20150529
  Serious: Yes (Other)
  Sender: FDA-Public Use
  Company Number: IL-ABBVIE-11P-082-0885328-00

PATIENT
  Age: 28 Year
  Sex: Female

DRUGS (4)
  1. KALETRA [Suspect]
     Active Substance: LOPINAVIR\RITONAVIR
     Indication: HUMAN IMMUNODEFICIENCY VIRUS TRANSMISSION
  2. KALETRA [Suspect]
     Active Substance: LOPINAVIR\RITONAVIR
     Indication: ANTIVIRAL TREATMENT
  3. COMBIVIR [Concomitant]
     Active Substance: LAMIVUDINE\ZIDOVUDINE
     Indication: ANTIVIRAL TREATMENT
     Route: 048
     Dates: start: 20111114
  4. KALETRA [Suspect]
     Active Substance: LOPINAVIR\RITONAVIR
     Indication: PROPHYLAXIS
     Route: 048
     Dates: start: 20111114

REACTIONS (1)
  - Abortion induced [Unknown]

NARRATIVE: CASE EVENT DATE: 20111212
